FAERS Safety Report 10189928 (Version 1)
Quarter: 2014Q2

REPORT INFORMATION
  Report Type: Spontaneous
  Country: US (occurrence: US)
  Receive Date: 20140522
  Receipt Date: 20140522
  Transmission Date: 20141212
  Serious: No
  Sender: FDA-Public Use
  Company Number: US-BAYER-2014-066426

PATIENT
  Age: 63 Year
  Sex: Female
  Weight: 61 kg

DRUGS (4)
  1. ONE A DAY WOMEN^S 50+ HEALTHY ADVANTAGE [Suspect]
     Dosage: 1 DF, QD WITH FOOD
     Route: 048
     Dates: start: 2008
  2. ALEVE CAPLET [Suspect]
     Indication: ANALGESIC THERAPY
     Dosage: 1 DF, ONCE
     Route: 048
     Dates: start: 2008, end: 2008
  3. RESTASIS [Concomitant]
  4. OMEPRAZOLE [Concomitant]

REACTIONS (6)
  - Urticaria [Recovered/Resolved]
  - Urticaria [Not Recovered/Not Resolved]
  - Feeling abnormal [None]
  - Dizziness [Recovered/Resolved]
  - Neurological examination abnormal [Recovered/Resolved]
  - Multiple allergies [Not Recovered/Not Resolved]
